FAERS Safety Report 5310353-8 (Version None)
Quarter: 2007Q2

REPORT INFORMATION
  Report Type: 
  Country: None (occurrence: None)
  Receive Date: 20070427
  Receipt Date: 20070423
  Transmission Date: 20071010
  Serious: Yes (Other)
  Sender: FDA-Public Use
  Company Number: ZA-ABBOTT-07P-143-0366216-00

PATIENT
  Age: 30 Year
  Sex: Female
  Weight: 88 kg

DRUGS (7)
  1. KALETRA [Suspect]
     Indication: HIV INFECTION
     Route: 048
     Dates: start: 20060413
  2. TENOVIR/AMTRICITABINE [Concomitant]
     Indication: HIV INFECTION
     Route: 048
     Dates: start: 20060413, end: 20060915
  3. TENOVIR/AMTRICITABINE [Concomitant]
     Route: 048
     Dates: start: 20070323
  4. LAMIVUDINE + ZIDOVUDINE [Concomitant]
     Indication: HIV INFECTION
     Route: 048
     Dates: start: 20070316, end: 20070323
  5. VITAMIND B COMPLETE [Concomitant]
     Indication: DRUG USE FOR UNKNOWN INDICATION
  6. ASCORBIC ACID [Concomitant]
     Indication: DRUG USE FOR UNKNOWN INDICATION
  7. STOP ITCH [Concomitant]
     Indication: DRUG USE FOR UNKNOWN INDICATION

REACTIONS (1)
  - ABORTION SPONTANEOUS [None]
